FAERS Safety Report 23365406 (Version 1)
Quarter: 2024Q1

REPORT INFORMATION
  Report Type: Spontaneous
  Country: DE (occurrence: DE)
  Receive Date: 20240104
  Receipt Date: 20240104
  Transmission Date: 20240410
  Serious: Yes (Other)
  Sender: FDA-Public Use
  Company Number: None

PATIENT
  Age: 72 Year
  Weight: 80 kg

DRUGS (2)
  1. ROSUVASTATIN [Suspect]
     Active Substance: ROSUVASTATIN
     Indication: Cardiovascular event prophylaxis
     Route: 048
     Dates: start: 20230524, end: 20231030
  2. EZETIMIBE [Suspect]
     Active Substance: EZETIMIBE
     Indication: Cardiovascular event prophylaxis
     Route: 048
     Dates: start: 20230524, end: 20231030

REACTIONS (4)
  - Renal failure [Recovered/Resolved with Sequelae]
  - Myalgia [Unknown]
  - Rhabdomyolysis [Recovered/Resolved with Sequelae]
  - Renal injury [Not Recovered/Not Resolved]

NARRATIVE: CASE EVENT DATE: 20231030
